FAERS Safety Report 8237678-0 (Version None)
Quarter: 2012Q1

REPORT INFORMATION
  Report Type: 
  Country: None (occurrence: None)
  Receive Date: 20120327
  Receipt Date: 20120320
  Transmission Date: 20120608
  Serious: Yes (Other)
  Sender: FDA-Public Use
  Company Number: US-UCBSA-053749

PATIENT
  Sex: Female

DRUGS (3)
  1. VIMPAT [Suspect]
     Dosage: CUT DOSES BACK
  2. LAMICTAL [Suspect]
  3. VIMPAT [Suspect]
     Dosage: DAILY DOSE:400 MG

REACTIONS (1)
  - PERICARDITIS [None]
